FAERS Safety Report 8718243 (Version 2)
Quarter: 2012Q4

REPORT INFORMATION
  Report Type: 
  Country: CO (occurrence: CO)
  Receive Date: 20120810
  Receipt Date: 20120828
  Transmission Date: 20130627
  Serious: Yes (Hospitalization, Other)
  Sender: FDA-Public Use
  Company Number: CO-ELI_LILLY_AND_COMPANY-CO201208000858

PATIENT
  Age: 14 Year
  Sex: Female

DRUGS (2)
  1. INSULIN HUMALOG [Suspect]
     Indication: TYPE 1 DIABETES MELLITUS
     Dosage: 50 u, every 3 days
     Route: 058
     Dates: start: 2007
  2. INSULIN HUMALOG [Suspect]
     Dosage: UNK
     Route: 058

REACTIONS (3)
  - Diabetic ketoacidosis [Recovering/Resolving]
  - Vomiting [Recovering/Resolving]
  - Hyperglycaemia [Not Recovered/Not Resolved]
